FAERS Safety Report 12208114 (Version 1)
Quarter: 2016Q1

REPORT INFORMATION
  Report Type: Report from Study
  Country: BR (occurrence: BR)
  Receive Date: 20160324
  Receipt Date: 20160324
  Transmission Date: 20160526
  Serious: Yes (Hospitalization, Other)
  Sender: FDA-Public Use
  Company Number: BR-JNJFOC-20160318058

PATIENT
  Age: 29 Year
  Sex: Male
  Weight: 79 kg

DRUGS (1)
  1. REMICADE [Suspect]
     Active Substance: INFLIXIMAB
     Indication: CROHN^S DISEASE
     Route: 042
     Dates: start: 201111

REACTIONS (11)
  - Post procedural discharge [Recovered/Resolved]
  - Colectomy [Unknown]
  - Incision site pain [Unknown]
  - Weight decreased [Recovered/Resolved]
  - Asthenia [Unknown]
  - Arthralgia [Unknown]
  - Colonic fistula [Unknown]
  - Ileectomy [Unknown]
  - Skin discolouration [Unknown]
  - Diarrhoea [Unknown]
  - Pyrexia [Unknown]

NARRATIVE: CASE EVENT DATE: 2015
